FAERS Safety Report 14314496 (Version 1)
Quarter: 2017Q4

REPORT INFORMATION
  Report Type: Spontaneous
  Country: ES (occurrence: ES)
  Receive Date: 20171221
  Receipt Date: 20171221
  Transmission Date: 20180321
  Serious: Yes (Other)
  Sender: FDA-Public Use
  Company Number: PHHY2017ES191481

PATIENT
  Age: 14 Year
  Sex: Male

DRUGS (2)
  1. DEFIBROTIDA [Suspect]
     Active Substance: DEFIBROTIDE (BOVINE)
     Indication: VENOOCCLUSIVE LIVER DISEASE
     Dosage: 1960 MG, UNK
     Route: 042
     Dates: start: 20170718, end: 20170809
  2. CICLOSPORINA SOLUFARMA [Suspect]
     Active Substance: CYCLOSPORINE
     Indication: BONE MARROW TRANSPLANT
     Route: 042

REACTIONS (2)
  - Urinary tract infection viral [Recovered/Resolved]
  - Haematuria [Recovered/Resolved]

NARRATIVE: CASE EVENT DATE: 20170808
